FAERS Safety Report 7492509-1 (Version None)
Quarter: 2011Q2

REPORT INFORMATION
  Report Type: 
  Country: None (occurrence: None)
  Receive Date: 20110519
  Receipt Date: 20110512
  Transmission Date: 20111010
  Serious: Yes (Hospitalization)
  Sender: FDA-Public Use
  Company Number: US-B.I. PHARMACEUTICALS,INC./RIDGEFIELD-2011-BP-12924BP

PATIENT
  Sex: Male

DRUGS (12)
  1. PAXIL [Concomitant]
     Indication: ANXIETY
     Dosage: 40 MG
     Route: 048
  2. ZETIA [Concomitant]
     Indication: BLOOD CHOLESTEROL INCREASED
     Dosage: 10 MG
     Route: 048
  3. LISINOPRIL [Concomitant]
     Indication: HYPERTENSION
     Route: 048
  4. WARFARIN SODIUM [Concomitant]
     Indication: CARDIAC DISORDER
     Route: 048
     Dates: start: 20110401
  5. ALLOPURINOL [Concomitant]
     Indication: PROPHYLAXIS
     Route: 048
  6. CRESTOR [Concomitant]
     Indication: BLOOD CHOLESTEROL INCREASED
     Dosage: 10 MG
     Route: 048
  7. PRADAXA [Suspect]
     Indication: ANTICOAGULANT THERAPY
     Dosage: 300 MG
     Route: 048
     Dates: start: 20110401, end: 20110401
  8. TRIAMTERENE [Concomitant]
     Indication: HYPERTENSION
     Route: 048
  9. CARBATROL [Concomitant]
     Indication: CARDIAC DISORDER
     Dosage: 12 MG
     Route: 048
  10. FINASTERIDE [Concomitant]
     Indication: BLADDER DISORDER
     Dosage: 5 MG
     Route: 048
  11. PAXIL [Concomitant]
     Indication: DEPRESSION
  12. LEVOXYL [Concomitant]
     Indication: THYROID DISORDER
     Dosage: 137 MG
     Route: 048

REACTIONS (1)
  - RECTAL HAEMORRHAGE [None]
